FAERS Safety Report 6764766-8 (Version None)
Quarter: 2010Q2

REPORT INFORMATION
  Report Type: 
  Country: None (occurrence: None)
  Receive Date: 20100610
  Receipt Date: 20100601
  Transmission Date: 20101027
  Serious: Yes (Hospitalization, Other)
  Sender: FDA-Public Use
  Company Number: US-WYE-H15488210

PATIENT
  Sex: Female
  Weight: 67.19 kg

DRUGS (6)
  1. EFFEXOR XR [Suspect]
     Indication: ANXIETY
     Dates: start: 20090415, end: 20090901
  2. EFFEXOR XR [Suspect]
     Dosage: RESTARTED BY TAKING ABOUT FIVE GRANULES FROM THE CAPSULE EACH TIME
     Dates: start: 20090901, end: 20090101
  3. COUMADIN [Concomitant]
     Dosage: UNKNOWN
  4. LANOXIN [Concomitant]
     Indication: ATRIAL FIBRILLATION
     Dosage: UNKNOWN
  5. DIOVAN [Concomitant]
     Indication: HYPERTENSION
     Dosage: 160 MG, FREQUENCY NOT SPECIFIED
  6. METFORMIN HCL [Concomitant]
     Indication: DIABETES MELLITUS
     Dosage: 500 MG, FREQUENCY UNKNOWN

REACTIONS (11)
  - ABNORMAL BEHAVIOUR [None]
  - AFFECT LABILITY [None]
  - AGGRESSION [None]
  - AMNESIA [None]
  - DRUG WITHDRAWAL SYNDROME [None]
  - ECONOMIC PROBLEM [None]
  - FEELING ABNORMAL [None]
  - PAIN [None]
  - SELF INJURIOUS BEHAVIOUR [None]
  - SOCIAL PROBLEM [None]
  - WRONG TECHNIQUE IN DRUG USAGE PROCESS [None]
